FAERS Safety Report 23289980 (Version 2)
Quarter: 2023Q4

REPORT INFORMATION
  Report Type: Spontaneous
  Country: US (occurrence: US)
  Receive Date: 20231212
  Receipt Date: 20231230
  Transmission Date: 20240110
  Serious: Yes (Other)
  Sender: FDA-Public Use
  Company Number: US-MLMSERVICE-20231129-4688056-1

PATIENT
  Age: 11 Year
  Sex: Female

DRUGS (11)
  1. CYCLOPHOSPHAMIDE [Suspect]
     Active Substance: CYCLOPHOSPHAMIDE
     Indication: B-cell type acute leukaemia
     Dosage: UNK
     Route: 065
  2. METHOTREXATE [Suspect]
     Active Substance: METHOTREXATE
     Indication: B-cell type acute leukaemia
     Dosage: UNK, CYCLICAL (ON DAYS 8 AND 29 OF EACH CYCLE)
     Route: 037
  3. PREDNISONE [Suspect]
     Active Substance: PREDNISONE
     Indication: B-cell type acute leukaemia
     Dosage: UNK
     Route: 065
  4. CYTARABINE [Suspect]
     Active Substance: CYTARABINE
     Indication: B-cell type acute leukaemia
     Dosage: UNK
     Route: 065
  5. DAUNORUBICIN [Suspect]
     Active Substance: DAUNORUBICIN
     Indication: B-cell type acute leukaemia
     Dosage: UNK
     Route: 065
  6. MERCAPTOPURINE [Suspect]
     Active Substance: MERCAPTOPURINE
     Indication: B-cell type acute leukaemia
     Dosage: UNK
     Route: 065
  7. PEGASPARGASE [Suspect]
     Active Substance: PEGASPARGASE
     Indication: B-cell type acute leukaemia
     Dosage: UNK
     Route: 065
  8. VINCRISTINE [Suspect]
     Active Substance: VINCRISTINE
     Indication: B-cell type acute leukaemia
     Dosage: UNK
     Route: 065
  9. BLINATUMOMAB [Concomitant]
     Active Substance: BLINATUMOMAB
     Indication: B-cell type acute leukaemia
     Dosage: 15 MICROGRAM/SQ. METER, ONCE A DAY
     Route: 065
     Dates: start: 201812
  10. DEXAMETHASONE [Concomitant]
     Active Substance: DEXAMETHASONE
     Indication: Pyrexia
     Dosage: UNK
     Route: 065
  11. DEXAMETHASONE [Concomitant]
     Active Substance: DEXAMETHASONE
     Indication: B-cell type acute leukaemia

REACTIONS (14)
  - Dysarthria [Recovered/Resolved]
  - Syncope [Recovered/Resolved]
  - Neurotoxicity [Recovered/Resolved]
  - Partial seizures [Recovered/Resolved]
  - Multiple organ dysfunction syndrome [Unknown]
  - Febrile neutropenia [Unknown]
  - Fungaemia [Unknown]
  - Ventricular arrhythmia [Unknown]
  - Torsade de pointes [Unknown]
  - Pseudomonal sepsis [Unknown]
  - Myelosuppression [Unknown]
  - Aspergillus infection [Unknown]
  - Asthenia [Unknown]
  - Hypertension [Unknown]

NARRATIVE: CASE EVENT DATE: 20200401
